FAERS Safety Report 7812748-7 (Version None)
Quarter: 2011Q4

REPORT INFORMATION
  Report Type: 
  Country: None (occurrence: None)
  Receive Date: 20111013
  Receipt Date: 20111005
  Transmission Date: 20120403
  Serious: Yes (Hospitalization)
  Sender: FDA-Public Use
  Company Number: US-B.I. PHARMACEUTICALS,INC./RIDGEFIELD-2011-BP-17581BP

PATIENT
  Age: 75 Year
  Sex: Male

DRUGS (8)
  1. ZOCOR [Concomitant]
     Indication: BLOOD CHOLESTEROL INCREASED
     Dosage: 40 MG
     Route: 048
     Dates: start: 20110221
  2. DIGOXIN [Concomitant]
     Indication: ATRIAL FIBRILLATION
  3. COREG [Concomitant]
     Indication: HYPERTENSION
     Dosage: 25 MG
     Route: 048
     Dates: start: 20110221
  4. ASPIRIN W/ CODEINE [Concomitant]
     Indication: ATRIAL FIBRILLATION
  5. PRADAXA [Suspect]
     Indication: ATRIAL FIBRILLATION
     Dosage: 150 MG
     Route: 048
     Dates: start: 20110615, end: 20110628
  6. DIGOXIN [Concomitant]
     Indication: HEART RATE IRREGULAR
     Dosage: 0.125 MG
     Route: 048
     Dates: start: 20110221
  7. ASPIRIN W/ CODEINE [Concomitant]
     Indication: HEART RATE IRREGULAR
     Route: 048
  8. ENALAPRIL MALEATE [Concomitant]
     Dosage: 20 MG
     Dates: start: 20110221

REACTIONS (4)
  - GASTROINTESTINAL MUCOSAL DISORDER [None]
  - GASTRIC HAEMORRHAGE [None]
  - ULCER [None]
  - LOWER GASTROINTESTINAL HAEMORRHAGE [None]
